FAERS Safety Report 9837744 (Version 1)
Quarter: 2013Q4

REPORT INFORMATION
  Report Type: Spontaneous
  Country: US (occurrence: None)
  Receive Date: 20131205
  Receipt Date: 20131205
  Transmission Date: 20140711
  Serious: No
  Sender: FDA-Public Use
  Company Number: 163-POMAL-13082630

PATIENT
  Age: 72 Year
  Sex: Female

DRUGS (4)
  1. POMALYST (POMALIDOMIDE) (2 MILLIGRAM, CAPSULES) [Suspect]
     Indication: PLASMA CELL MYELOMA
     Route: 048
     Dates: start: 20130604
  2. CYMBALTA (DULOXETINE HYDROCHLORIDE) [Concomitant]
  3. LABETALOL (LABETALOL) [Concomitant]
  4. CLONIDINE (CLONIDINE) [Concomitant]

REACTIONS (2)
  - Hypertension [None]
  - Headache [None]
